FAERS Safety Report 6385751-4 (Version None)
Quarter: 2009Q4

REPORT INFORMATION
  Report Type: 
  Country: None (occurrence: None)
  Receive Date: 20091002
  Receipt Date: 20080925
  Transmission Date: 20100525
  Serious: No
  Sender: FDA-Public Use
  Company Number: US-ASTRAZENECA-2008UW20450

PATIENT
  Age: 78 Year
  Sex: Female

DRUGS (4)
  1. ARIMIDEX [Suspect]
     Route: 048
     Dates: start: 20070901
  2. DESIPRAMINE [Suspect]
     Dosage: 25 MG TWO TABLETS AT NIGHT
  3. KLONOPIN [Suspect]
     Dosage: 1 MG 1 1/2 TABLETS AT NIGHT AND 0.5 MG PRN EVERYDAY
  4. MICARDIS [Suspect]

REACTIONS (2)
  - DIZZINESS [None]
  - MEDICATION ERROR [None]
